FAERS Safety Report 21983992 (Version 1)
Quarter: 2023Q1

REPORT INFORMATION
  Report Type: Spontaneous
  Country: CZ (occurrence: CZ)
  Receive Date: 20230213
  Receipt Date: 20230213
  Transmission Date: 20230418
  Serious: Yes (Other)
  Sender: FDA-Public Use
  Company Number: CZ-Accord-299596

PATIENT
  Sex: Female

DRUGS (3)
  1. FLUOROURACIL [Suspect]
     Active Substance: FLUOROURACIL
     Indication: Pancreatic carcinoma metastatic
     Dosage: CONTINUOUSLY FOR 48 HOURS
     Dates: start: 202105
  2. LEUCOVORIN [Suspect]
     Active Substance: LEUCOVORIN
     Indication: Pancreatic carcinoma metastatic
     Dosage: CONTINUOUSLY FOR 48 HOURS
     Dates: start: 202105
  3. IRINOTECAN [Suspect]
     Active Substance: IRINOTECAN
     Indication: Pancreatic carcinoma metastatic
     Dosage: CONTINUOUSLY FOR 48 HOURS AND DOSE WAS REDUCED TO 50 MG/M2 FROM 2ND ADMINISTRATION
     Dates: start: 202105

REACTIONS (2)
  - Febrile neutropenia [Recovered/Resolved]
  - Aphthous ulcer [Recovered/Resolved]
